FAERS Safety Report 10790970 (Version 3)
Quarter: 2015Q2

REPORT INFORMATION
  Report Type: Spontaneous
  Country: IE (occurrence: IE)
  Receive Date: 20150212
  Receipt Date: 20150428
  Transmission Date: 20150821
  Serious: Yes (Other)
  Sender: FDA-Public Use
  Company Number: IE-GILEAD-2015-0136292

PATIENT
  Age: 55 Year
  Sex: Male
  Weight: 107 kg

DRUGS (15)
  1. LAXOSE [Concomitant]
  2. COPEGUS 400 MG FILM-COATED TABLET [Concomitant]
     Indication: HEPATITIS C
     Dosage: 400MG MANE AND 600MG TARDE
     Dates: start: 20141209
  3. TARGAXAN [Concomitant]
  4. LAXOSE [Concomitant]
     Indication: FUNCTIONAL GASTROINTESTINAL DISORDER
     Dosage: 30 ML, TID
  5. LANSOPRAZOLE. [Concomitant]
     Active Substance: LANSOPRAZOLE
     Indication: GASTRITIS
     Dosage: 15 MG, QD
  6. TARGAXAN [Concomitant]
     Indication: HEPATIC ENCEPHALOPATHY
     Dosage: 550 MG, BID
  7. BENERVA (GENERIC) [Concomitant]
     Indication: VITAMIN SUPPLEMENTATION
  8. LANSOPRAZOLE (GENERIC) [Concomitant]
     Active Substance: LANSOPRAZOLE
     Indication: GASTRITIS
  9. PINADONE METHADONE MIXTURE DTF SUGAR FREE [Concomitant]
     Indication: DRUG WITHDRAWAL MAINTENANCE THERAPY
     Dosage: 25MG
  10. COPEGUS [Concomitant]
     Active Substance: RIBAVIRIN
     Dosage: 600 MG, QD
     Dates: start: 20141209
  11. PINADONE [Concomitant]
     Indication: DRUG WITHDRAWAL MAINTENANCE THERAPY
     Dosage: 25 MG, UNK
  12. HEPA MERZ [Concomitant]
  13. COPEGUS [Concomitant]
     Active Substance: RIBAVIRIN
     Indication: HEPATITIS C
     Dosage: 400 MG, QD
     Dates: start: 20141209
  14. BENERVA [Concomitant]
     Active Substance: THIAMINE
     Indication: VITAMIN SUPPLEMENTATION
     Dosage: 100 MG, TID
  15. HARVONI [Suspect]
     Active Substance: LEDIPASVIR\SOFOSBUVIR
     Indication: HEPATITIS C
     Dosage: 400MG/90MG
     Route: 048
     Dates: start: 20141209

REACTIONS (2)
  - Coma scale abnormal [Recovered/Resolved]
  - Hepatic encephalopathy [Recovered/Resolved]

NARRATIVE: CASE EVENT DATE: 20150119
